FAERS Safety Report 7466169-X (Version None)
Quarter: 2011Q2

REPORT INFORMATION
  Report Type: 
  Country: None (occurrence: None)
  Receive Date: 20110509
  Receipt Date: 20110429
  Transmission Date: 20111010
  Serious: Yes (Other)
  Sender: FDA-Public Use
  Company Number: PHHY2011GB36430

PATIENT

DRUGS (2)
  1. FLUOXETINE [Suspect]
     Dosage: UNK
     Route: 064
  2. DIAMORPHINE [Concomitant]
     Dosage: UNK
     Route: 064

REACTIONS (15)
  - ELECTROENCEPHALOGRAM ABNORMAL [None]
  - OPISTHOTONUS [None]
  - HYPERTONIA NEONATAL [None]
  - CEREBRAL DISORDER [None]
  - IRRITABILITY [None]
  - DRUG EXPOSURE DURING PREGNANCY [None]
  - AGITATION NEONATAL [None]
  - FLOPPY INFANT [None]
  - DYSKINESIA [None]
  - POSTURE ABNORMAL [None]
  - MUSCLE SPASTICITY [None]
  - OXYGEN SATURATION DECREASED [None]
  - APGAR SCORE LOW [None]
  - HYPERVENTILATION [None]
  - MATERNAL DRUGS AFFECTING FOETUS [None]
